FAERS Safety Report 19026158 (Version 1)
Quarter: 2021Q1

REPORT INFORMATION
  Report Type: Spontaneous
  Country: US (occurrence: US)
  Receive Date: 20210318
  Receipt Date: 20210318
  Transmission Date: 20210420
  Serious: Yes (Other)
  Sender: FDA-Public Use
  Company Number: None

PATIENT
  Age: 47 Year
  Sex: Female
  Weight: 85.5 kg

DRUGS (16)
  1. ALBUTEROL INHALER [Concomitant]
     Active Substance: ALBUTEROL
  2. WOMWN^S DAILY GUMMY VITAMIN [Concomitant]
  3. CHOLESTYRAMINE PURE POWDER [Suspect]
     Active Substance: CHOLESTYRAMINE
     Indication: SYSTEMIC INFLAMMATORY RESPONSE SYNDROME
     Dosage: ?          QUANTITY:1.75 TEASPOON(S);?
     Route: 048
     Dates: start: 20200320, end: 20200520
  4. CHOLESTYRAMINE PURE POWDER [Suspect]
     Active Substance: CHOLESTYRAMINE
     Indication: FUNGAL INFECTION
     Dosage: ?          QUANTITY:1.75 TEASPOON(S);?
     Route: 048
     Dates: start: 20200320, end: 20200520
  5. MONTELUKAST [Concomitant]
     Active Substance: MONTELUKAST SODIUM
  6. MAGNESIUM [Concomitant]
     Active Substance: MAGNESIUM
  7. HYDROXYZINE PAMOATE. [Concomitant]
     Active Substance: HYDROXYZINE PAMOATE
  8. HAIR,SKIN, AND NAILS [Concomitant]
  9. TOPIRAMATE. [Concomitant]
     Active Substance: TOPIRAMATE
  10. PANTOPRAZOLE [Concomitant]
     Active Substance: PANTOPRAZOLE
  11. BUDESONIDE ANS FORMOTEROL DIHYDRATE INHALATION AEROSOL [Concomitant]
  12. VITAMIN B2 [Concomitant]
     Active Substance: RIBOFLAVIN
  13. POTASSIUM [Concomitant]
     Active Substance: POTASSIUM
  14. FEXOFENADINE HYDROCHLORIDE. [Concomitant]
     Active Substance: FEXOFENADINE HYDROCHLORIDE
  15. VITAMIN D3 [Concomitant]
     Active Substance: CHOLECALCIFEROL
  16. VIT K2 [Concomitant]

REACTIONS (3)
  - Therapy cessation [None]
  - Gastrooesophageal reflux disease [None]
  - Condition aggravated [None]

NARRATIVE: CASE EVENT DATE: 20200330
